FAERS Safety Report 9781895 (Version 3)
Quarter: 2014Q1

REPORT INFORMATION
  Report Type: Spontaneous
  Country: NO (occurrence: NO)
  Receive Date: 20131225
  Receipt Date: 20140328
  Transmission Date: 20141002
  Serious: Yes (Hospitalization)
  Sender: FDA-Public Use
  Company Number: NO-ACCORD-020900

PATIENT
  Age: 18 Year
  Sex: Female

DRUGS (2)
  1. ETOPOSIDE [Suspect]
     Indication: EWING^S SARCOMA METASTATIC
     Dosage: IN 3 DAYS, TOTAL CUMULATIVE DOSE:1500 MG/M2
     Route: 042
  2. IFOSFAMIDE [Suspect]
     Indication: EWING^S SARCOMA METASTATIC
     Dosage: IN 5 DAYS. TOTAL CUMULATIVE DOSE:27000 MG/M2
     Route: 042

REACTIONS (4)
  - Neutropenia [Unknown]
  - Toxicity to various agents [Unknown]
  - Therapeutic response decreased [Unknown]
  - Ileus [Unknown]
